FAERS Safety Report 22090052 (Version 1)
Quarter: 2023Q1

REPORT INFORMATION
  Report Type: Spontaneous
  Country: IT (occurrence: None)
  Receive Date: 20230313
  Receipt Date: 20230313
  Transmission Date: 20230417
  Serious: Yes (Hospitalization)
  Sender: FDA-Public Use
  Company Number: None

PATIENT
  Age: 57 Year
  Sex: Female

DRUGS (1)
  1. HYDROXYCHLOROQUINE [Suspect]
     Active Substance: HYDROXYCHLOROQUINE
     Indication: Rheumatoid arthritis
     Route: 065

REACTIONS (8)
  - Rash pustular [None]
  - Erythema [None]
  - Rash [None]
  - Pruritus [None]
  - Erythema annulare [None]
  - C-reactive protein increased [None]
  - Subcorneal pustular dermatosis [None]
  - Adverse drug reaction [None]
